FAERS Safety Report 8304599-4 (Version None)
Quarter: 2012Q2

REPORT INFORMATION
  Report Type: 
  Country: None (occurrence: None)
  Receive Date: 20120423
  Receipt Date: 20120416
  Transmission Date: 20120825
  Serious: Yes (Death, Hospitalization)
  Sender: FDA-Public Use
  Company Number: US-JNJFOC-20120300401

PATIENT
  Sex: Male
  Weight: 88.45 kg

DRUGS (11)
  1. NUCYNTA [Suspect]
     Indication: PAIN
     Dosage: ONE TABLET, 4-6 HOURS AS PER NECESSARY
     Route: 048
     Dates: start: 20111213, end: 20111214
  2. OMEPRAZOLE [Concomitant]
     Route: 048
     Dates: start: 20111213
  3. REMERON [Concomitant]
     Indication: DECREASED APPETITE
     Route: 065
     Dates: start: 20120103, end: 20120115
  4. LANTUS [Concomitant]
     Indication: DIABETES MELLITUS
     Dosage: 40 UNITS DAILY
     Route: 058
  5. NUCYNTA [Suspect]
     Route: 048
     Dates: start: 20111216, end: 20111201
  6. DILAUDID [Concomitant]
     Indication: PAIN
     Route: 048
     Dates: start: 20111215, end: 20120115
  7. OMEPRAZOLE [Concomitant]
     Route: 048
     Dates: start: 20111227
  8. PROCHLORPERAZINE [Concomitant]
     Indication: NAUSEA
     Route: 048
     Dates: start: 20111213, end: 20120115
  9. DILAUDID [Concomitant]
     Route: 048
     Dates: start: 20111227
  10. PROCHLORPERAZINE [Concomitant]
     Route: 048
     Dates: start: 20111227
  11. PHENERGAN HCL [Concomitant]
     Route: 048

REACTIONS (4)
  - DEATH [None]
  - CONFUSIONAL STATE [None]
  - INTENTIONAL OVERDOSE [None]
  - PAIN [None]
